FAERS Safety Report 8110776-8 (Version None)
Quarter: 2012Q1

REPORT INFORMATION
  Report Type: 
  Country: None (occurrence: None)
  Receive Date: 20120203
  Receipt Date: 20120119
  Transmission Date: 20120608
  Serious: Yes (Other)
  Sender: FDA-Public Use
  Company Number: CA-JNJFOC-20111000286

PATIENT
  Sex: Female
  Weight: 105 kg

DRUGS (13)
  1. REMICADE [Suspect]
     Indication: COLITIS
     Dosage: 43 INFUSIONS, ONCE EVERY 6 (INTERVAL UNSPECIFIED)
     Route: 042
     Dates: start: 20101001
  2. REMICADE [Suspect]
     Indication: PSORIATIC ARTHROPATHY
     Dosage: 43 INFUSIONS, ONCE EVERY 6 (INTERVAL UNSPECIFIED)
     Route: 042
     Dates: start: 20101001
  3. ATORVASTATIN [Concomitant]
  4. WARFARIN SODIUM [Concomitant]
  5. FOLIC ACID [Concomitant]
     Dosage: MONDAY TO SATURDAY
  6. BISOPROLOL [Concomitant]
  7. OMEGA FISH OILS [Concomitant]
  8. METHOTREXATE [Concomitant]
  9. REMICADE [Suspect]
     Indication: PSORIASIS
     Dosage: 43 INFUSIONS, ONCE EVERY 6 (INTERVAL UNSPECIFIED)
     Route: 042
     Dates: start: 20101001
  10. MULTIPLE VITAMIN [Concomitant]
  11. LYRICA [Concomitant]
  12. SYNTHROID [Concomitant]
  13. RABEPRAZOLE SODIUM [Concomitant]

REACTIONS (1)
  - TRANSIENT ISCHAEMIC ATTACK [None]
